FAERS Safety Report 18333659 (Version 1)
Quarter: 2020Q4

REPORT INFORMATION
  Report Type: Spontaneous
  Country: US (occurrence: ES)
  Receive Date: 20201001
  Receipt Date: 20201001
  Transmission Date: 20210113
  Serious: Yes (Other)
  Sender: FDA-Public Use
  Company Number: US-AUROBINDO-AUR-APL-2017-06339

PATIENT
  Age: 64 Year
  Sex: Female

DRUGS (6)
  1. CLOZAPINE. [Suspect]
     Active Substance: CLOZAPINE
     Indication: SCHIZOPHRENIA
     Dosage: 600 MILLIGRAM, ONCE A DAY
     Route: 065
  2. HALOPERIDOL. [Interacting]
     Active Substance: HALOPERIDOL
     Indication: SCHIZOPHRENIA
     Dosage: 36 MILLIGRAM, ONCE A DAY
     Route: 065
  3. BIPERIDEN [Concomitant]
     Active Substance: BIPERIDEN
     Indication: PRODUCT USED FOR UNKNOWN INDICATION
     Dosage: 1.5 MILLIGRAM, ONCE A DAY
     Route: 065
  4. LEVOMEPROMAZINE [Concomitant]
     Active Substance: LEVOMEPROMAZINE
     Indication: PRODUCT USED FOR UNKNOWN INDICATION
     Dosage: 100 MILLIGRAM, AT NIGHT
     Route: 065
  5. OLANZAPINE. [Interacting]
     Active Substance: OLANZAPINE
     Indication: SCHIZOPHRENIA
     Dosage: 30 MILLIGRAM, ONCE A DAY
     Route: 065
  6. VALPROIC ACID. [Interacting]
     Active Substance: VALPROIC ACID
     Indication: SCHIZOPHRENIA
     Dosage: 300 MILLIGRAM, DAILY (INCREASED TO 1500 MG DAILY IN 2 WEEKS)
     Route: 065

REACTIONS (4)
  - Drug interaction [Unknown]
  - Pericardial effusion [Unknown]
  - Pleural effusion [Recovered/Resolved]
  - Eosinophilia [Recovered/Resolved]
